FAERS Safety Report 9661361 (Version 1)
Quarter: 2013Q4

REPORT INFORMATION
  Report Type: Spontaneous
  Country: US (occurrence: None)
  Receive Date: 20131030
  Receipt Date: 20131030
  Transmission Date: 20140711
  Serious: Yes (Hospitalization, Other)
  Sender: FDA-Public Use
  Company Number: ADR-2013-01957

PATIENT
  Sex: Female

DRUGS (1)
  1. LIORESAL [Suspect]

REACTIONS (4)
  - Somnolence [None]
  - Compression fracture [None]
  - Pneumonia [None]
  - Cerebrovascular accident [None]
